FAERS Safety Report 8822652 (Version 2)
Quarter: 2012Q4

REPORT INFORMATION
  Report Type: 
  Country: US (occurrence: US)
  Receive Date: 20121003
  Receipt Date: 20121010
  Transmission Date: 20130627
  Serious: No
  Sender: FDA-Public Use
  Company Number: US-TEVA-361312USA

PATIENT
  Sex: Male

DRUGS (3)
  1. QNASL [Suspect]
     Indication: SEASONAL ALLERGY
     Dosage: 320 Microgram Daily;
     Route: 045
     Dates: start: 20120923
  2. QNASL [Suspect]
     Indication: RHINITIS PERENNIAL
  3. ZYRTEC [Concomitant]
     Indication: HYPERSENSITIVITY
     Dosage: 5 Milligram Daily;

REACTIONS (2)
  - Drug ineffective [Not Recovered/Not Resolved]
  - Upper-airway cough syndrome [Not Recovered/Not Resolved]
